FAERS Safety Report 16991715 (Version 1)
Quarter: 2019Q4

REPORT INFORMATION
  Report Type: Spontaneous
  Country: US (occurrence: US)
  Receive Date: 20191104
  Receipt Date: 20191104
  Transmission Date: 20200122
  Serious: Yes (Life-Threatening, Hospitalization)
  Sender: FDA-Public Use
  Company Number: US-ROCHE-2195017

PATIENT
  Age: 22 Year
  Sex: Male
  Weight: 40.41 kg

DRUGS (6)
  1. HYPERSAL [Concomitant]
     Active Substance: SODIUM CHLORIDE
     Dosage: ONGOING: UNKNOWN
     Route: 045
     Dates: start: 20171108
  2. FLONASE [Concomitant]
     Active Substance: FLUTICASONE PROPIONATE
     Dosage: ONGOING: UNKNOWN
     Route: 045
     Dates: start: 20171108
  3. PULMOZYME [Suspect]
     Active Substance: DORNASE ALFA
     Indication: CEREBRAL PALSY
     Dosage: ONGOING: UNKNOWN 1MG/ML 2.5ML INHALER SOL
     Route: 045
     Dates: start: 20171110
  4. ESOMEPRAZOLE. [Concomitant]
     Active Substance: ESOMEPRAZOLE MAGNESIUM
     Dosage: ONGOING: UNKNOWN
     Route: 048
     Dates: start: 20171108
  5. PULMOZYME [Suspect]
     Active Substance: DORNASE ALFA
     Indication: QUADRIPLEGIA
  6. FLUZONE HIGH-DOSE NOS [Concomitant]
     Active Substance: INFLUENZA A VIRUS A/CALIFORNIA/7/2009 X-179A (H1N1) ANTIGEN (FORMALDEHYDE INACTIVATED)\INFLUENZA A VIRUS A/VICTORIA/210/2009 X-187 (H3N2) ANTIGEN (FORMALDEHYDE INACTIVATED)\INFLUENZA B VIRUS B/BRISBANE/60/2008 ANTIGEN (FORMALDEHYDE INACTIVATED)
     Dosage: ONGOING: UNKNOWN
     Route: 030
     Dates: start: 20171110

REACTIONS (3)
  - Dyspnoea [Recovering/Resolving]
  - Intentional product use issue [Unknown]
  - Off label use [Unknown]

NARRATIVE: CASE EVENT DATE: 20180921
